FAERS Safety Report 5609224-9 (Version None)
Quarter: 2008Q1

REPORT INFORMATION
  Report Type: 
  Country: None (occurrence: None)
  Receive Date: 20080129
  Receipt Date: 20080129
  Transmission Date: 20080703
  Serious: Yes (Other)
  Sender: FDA-Public Use
  Company Number: None

PATIENT
  Sex: Female
  Weight: 115.6672 kg

DRUGS (1)
  1. VYTORIN [Suspect]
     Indication: BLOOD TRIGLYCERIDES INCREASED
     Dosage: 10-10 MG. 1 PO
     Route: 048
     Dates: start: 20030108, end: 20080125

REACTIONS (4)
  - ASTHENIA [None]
  - MUSCLE HAEMORRHAGE [None]
  - MUSCLE INJURY [None]
  - PAIN IN EXTREMITY [None]
